FAERS Safety Report 17284687 (Version 1)
Quarter: 2020Q1

REPORT INFORMATION
  Report Type: Spontaneous
  Country: US (occurrence: US)
  Receive Date: 20200117
  Receipt Date: 20200117
  Transmission Date: 20200409
  Serious: No
  Sender: FDA-Public Use
  Company Number: US-ELI_LILLY_AND_COMPANY-US202001002431

PATIENT
  Age: 57 Year
  Sex: Female

DRUGS (1)
  1. CYMBALTA [Suspect]
     Active Substance: DULOXETINE HYDROCHLORIDE
     Indication: PRODUCT USED FOR UNKNOWN INDICATION
     Dosage: 30 MG, BID
     Route: 065

REACTIONS (35)
  - Fibromyalgia [Unknown]
  - Arthritis [Unknown]
  - Acne [Unknown]
  - Somnolence [Unknown]
  - Abdominal pain lower [Unknown]
  - Back pain [Unknown]
  - Vomiting [Unknown]
  - Abdominal pain upper [Unknown]
  - Abdominal distension [Unknown]
  - Platelet count decreased [Unknown]
  - Dizziness [Unknown]
  - Muscle spasms [Unknown]
  - Pain [Unknown]
  - Tooth fracture [Unknown]
  - Vitreous floaters [Unknown]
  - Anaemia [Unknown]
  - Dry mouth [Unknown]
  - Feeling cold [Unknown]
  - Contusion [Unknown]
  - Nasopharyngitis [Unknown]
  - Poor quality sleep [Unknown]
  - Malaise [Unknown]
  - Asthenia [Unknown]
  - Pruritus [Unknown]
  - Pain in extremity [Unknown]
  - Toothache [Unknown]
  - Blood disorder [Unknown]
  - Arthralgia [Unknown]
  - Epistaxis [Unknown]
  - Fatigue [Unknown]
  - White blood cell count abnormal [Unknown]
  - Depressed mood [Unknown]
  - Hypoaesthesia [Unknown]
  - Nausea [Unknown]
  - Headache [Unknown]
